FAERS Safety Report 23406483 (Version 1)
Quarter: 2024Q1

REPORT INFORMATION
  Report Type: Spontaneous
  Country: CH (occurrence: None)
  Receive Date: 20240116
  Receipt Date: 20240116
  Transmission Date: 20240409
  Serious: Yes (Other)
  Sender: FDA-Public Use
  Company Number: 2024A007894

PATIENT
  Age: 44 Year
  Sex: Female

DRUGS (12)
  1. TAMOXIFEN [Suspect]
     Active Substance: TAMOXIFEN
     Indication: Invasive ductal breast carcinoma
     Route: 048
  2. FULVESTRANT [Suspect]
     Active Substance: FULVESTRANT
     Indication: Invasive ductal breast carcinoma
     Route: 030
  3. PALBOCICLIB [Suspect]
     Active Substance: PALBOCICLIB
     Indication: Invasive ductal breast carcinoma
     Route: 048
  4. DOCETAXEL [Concomitant]
     Active Substance: DOCETAXEL\DOCETAXEL ANHYDROUS
  5. CYCLOPHOSPHAMIDE [Concomitant]
     Active Substance: CYCLOPHOSPHAMIDE
  6. EXEMESTANE [Concomitant]
     Active Substance: EXEMESTANE
  7. CAPECITABINE [Concomitant]
     Active Substance: CAPECITABINE
  8. DOXORUBICIN [Concomitant]
     Active Substance: DOXORUBICIN
  9. ERIBULIN [Concomitant]
     Active Substance: ERIBULIN
  10. GEMCITABINE [Concomitant]
     Active Substance: GEMCITABINE
  11. CARBOPLATIN [Concomitant]
     Active Substance: CARBOPLATIN
  12. VINORELBINE [Concomitant]
     Active Substance: VINORELBINE TARTRATE

REACTIONS (6)
  - Malignant neoplasm progression [Unknown]
  - Metastases to bone [Unknown]
  - Metastases to liver [Unknown]
  - Metastases to pleura [Unknown]
  - Metastases to central nervous system [Recovering/Resolving]
  - Metastases to meninges [Recovered/Resolved]
